FAERS Safety Report 5621762-1 (Version None)
Quarter: 2008Q1

REPORT INFORMATION
  Report Type: 
  Country: None (occurrence: None)
  Receive Date: 20080211
  Receipt Date: 20080129
  Transmission Date: 20080703
  Serious: Yes (Hospitalization)
  Sender: FDA-Public Use
  Company Number: PHHO2008IN01938

PATIENT
  Age: 57 Year

DRUGS (6)
  1. VALSARTAN [Suspect]
     Indication: HYPERTENSION
     Dosage: 160 MG, QD
     Route: 048
     Dates: start: 20080121, end: 20080127
  2. VALSARTAN [Suspect]
     Dosage: 360 MG, QD
     Route: 048
     Dates: start: 20080128, end: 20080129
  3. HYDROCHLOROTHIAZIDE COMPARATOR COMP-HYD+ [Suspect]
     Indication: HYPERTENSION
     Dosage: 12.5 MG, QD
     Route: 048
     Dates: start: 20080121, end: 20080127
  4. HYDROCHLOROTHIAZIDE COMPARATOR COMP-HYD+ [Suspect]
     Dosage: 25 MG, QD
     Route: 048
     Dates: start: 20080128, end: 20080129
  5. AMLODIPINE COMPARATOR COMP-AML+ [Suspect]
     Indication: HYPERTENSION
     Dosage: 5 MG, QD
     Route: 048
     Dates: start: 20080121, end: 20080127
  6. AMLODIPINE COMPARATOR COMP-AML+ [Suspect]
     Dosage: 10 MG, QD
     Route: 048
     Dates: start: 20080128, end: 20080129

REACTIONS (3)
  - ATRIAL FIBRILLATION [None]
  - HEART RATE IRREGULAR [None]
  - PALPITATIONS [None]
